FAERS Safety Report 16332601 (Version 9)
Quarter: 2022Q2

REPORT INFORMATION
  Report Type: Spontaneous
  Country: US (occurrence: US)
  Receive Date: 20190520
  Receipt Date: 20220518
  Transmission Date: 20220720
  Serious: No
  Sender: FDA-Public Use
  Company Number: US-PFIZER INC-2018054716

PATIENT
  Age: 63 Year
  Sex: Female
  Weight: 68.027 kg

DRUGS (13)
  1. FRAGMIN [Suspect]
     Active Substance: DALTEPARIN SODIUM
     Indication: Thrombosis prophylaxis
     Dosage: DAILY (15 UNITS, 15,000 0.6MG, INJECTION)
     Route: 033
     Dates: start: 2012, end: 201711
  2. FRAGMIN [Suspect]
     Active Substance: DALTEPARIN SODIUM
     Indication: Deep vein thrombosis
     Dosage: 10000 IU, UNK
     Route: 058
  3. FRAGMIN [Suspect]
     Active Substance: DALTEPARIN SODIUM
     Indication: Cervix carcinoma
     Dosage: 0.4 ML (15,000 ANTI-XA UNIT/ 0.6 ML, INJECT 0.4ML AM )
     Route: 058
  4. FRAGMIN [Suspect]
     Active Substance: DALTEPARIN SODIUM
     Indication: Thrombosis
     Dosage: 15000 IU, DAILY (15,000 IU PER 0.6 ML ONE INJECTION DAILY)
     Route: 058
     Dates: start: 2007
  5. FRAGMIN [Suspect]
     Active Substance: DALTEPARIN SODIUM
     Dosage: 15,000 IU, DAILY (15,000 IU PER 0.6 ML ONE INJECTION DAILY)
     Dates: start: 2009
  6. FRAGMIN [Suspect]
     Active Substance: DALTEPARIN SODIUM
     Dosage: 15000 IU/0.6 ML, 1X/DAY (EVERY MORNING)
     Route: 058
  7. FRAGMIN [Suspect]
     Active Substance: DALTEPARIN SODIUM
     Dosage: 15,000/0.6 MG
     Route: 033
  8. FRAGMIN [Suspect]
     Active Substance: DALTEPARIN SODIUM
     Dosage: 15,000 ANTI-XA UNIT/0.6ML SUBCUTANEOUS SYRINGE (INJECT 0.6 ML SQ AM 3 MONTH SUPPLY
     Route: 058
  9. HUMIRA [Concomitant]
     Active Substance: ADALIMUMAB
     Indication: Rheumatoid arthritis
     Dosage: 40 MG, WEEKLY (40MG INJECTION ONCE A WEEK)
     Route: 058
     Dates: start: 2012
  10. ENOXAPARIN [Concomitant]
     Active Substance: ENOXAPARIN
     Dosage: UNK
  11. OXYGEN [Concomitant]
     Active Substance: OXYGEN
     Dosage: UNK
  12. PREMARIN [Concomitant]
     Active Substance: ESTROGENS, CONJUGATED
     Dosage: 1 G, 2X/DAY
     Route: 067
  13. NITROSTAT [Concomitant]
     Active Substance: NITROGLYCERIN
     Dosage: 0.4 MG, AS NEEDED
     Route: 048

REACTIONS (2)
  - Memory impairment [Unknown]
  - Intentional product misuse [Unknown]

NARRATIVE: CASE EVENT DATE: 20190101
